FAERS Safety Report 6160251-5 (Version None)
Quarter: 2009Q2

REPORT INFORMATION
  Report Type: 
  Country: None (occurrence: None)
  Receive Date: 20090420
  Receipt Date: 20090409
  Transmission Date: 20091009
  Serious: Yes (Other)
  Sender: FDA-Public Use
  Company Number: B0570074A

PATIENT
  Sex: Male

DRUGS (6)
  1. FORTUM [Suspect]
     Indication: DRUG USE FOR UNKNOWN INDICATION
     Dosage: 2MG TWICE PER DAY
     Route: 065
     Dates: start: 20090321
  2. AMIKACIN [Suspect]
     Indication: DRUG USE FOR UNKNOWN INDICATION
     Route: 065
     Dates: start: 20090321
  3. FLUCONAZOLE [Concomitant]
     Indication: DRUG USE FOR UNKNOWN INDICATION
     Route: 065
  4. UNKNOWN DRUG [Concomitant]
     Indication: DRUG USE FOR UNKNOWN INDICATION
     Route: 065
  5. MANITOL [Concomitant]
     Indication: DRUG USE FOR UNKNOWN INDICATION
     Route: 065
  6. AMINOPHYLLINE [Concomitant]
     Indication: DRUG USE FOR UNKNOWN INDICATION
     Route: 065

REACTIONS (3)
  - ERYTHEMA [None]
  - EYE INFLAMMATION [None]
  - STEVENS-JOHNSON SYNDROME [None]
